FAERS Safety Report 7503111-7 (Version None)
Quarter: 2011Q2

REPORT INFORMATION
  Report Type: 
  Country: None (occurrence: None)
  Receive Date: 20110525
  Receipt Date: 20110520
  Transmission Date: 20111010
  Serious: No
  Sender: FDA-Public Use
  Company Number: US-PFIZER INC-2011109936

PATIENT
  Age: 77 Year
  Sex: Female

DRUGS (1)
  1. ADVIL LIQUI-GELS [Suspect]
     Indication: ARTHRALGIA
     Dosage: 200 MG, 2X/DAY
     Dates: start: 20100701, end: 20110401

REACTIONS (2)
  - DRUG DISPENSING ERROR [None]
  - DRUG INEFFECTIVE [None]
